FAERS Safety Report 4884798-4 (Version None)
Quarter: 2006Q1

REPORT INFORMATION
  Report Type: 
  Country: None (occurrence: None)
  Receive Date: 20060117
  Receipt Date: 20060104
  Transmission Date: 20060701
  Serious: Yes (Other)
  Sender: FDA-Public Use
  Company Number: 2006002693

PATIENT
  Sex: Female
  Weight: 65.318 kg

DRUGS (3)
  1. NEURONTIN [Suspect]
     Indication: RESTLESSNESS
     Dosage: 300 MG (300 MG, 1 IN 1D)
     Dates: start: 20030922, end: 20040101
  2. VICODIN (HYDROCODONE BITARTRATE, PARACETAMOL0 [Concomitant]
  3. MOTRIN [Concomitant]

REACTIONS (9)
  - ANXIETY [None]
  - BLOOD PRESSURE DECREASED [None]
  - DYSPNOEA [None]
  - LOCAL SWELLING [None]
  - NERVOUSNESS [None]
  - RASH PRURITIC [None]
  - SWELLING FACE [None]
  - THROAT TIGHTNESS [None]
  - TREMOR [None]
